FAERS Safety Report 9447857 (Version 2)
Quarter: 2013Q3

REPORT INFORMATION
  Report Type: Spontaneous
  Country: FR (occurrence: FR)
  Receive Date: 20130808
  Receipt Date: 20130830
  Transmission Date: 20140515
  Serious: Yes (Hospitalization)
  Sender: FDA-Public Use
  Company Number: FR-BRISTOL-MYERS SQUIBB COMPANY-19165422

PATIENT
  Age: 27 Year
  Sex: Male

DRUGS (5)
  1. ABILIFY [Suspect]
     Indication: SCHIZOPHRENIA
     Route: 048
  2. SERESTA [Concomitant]
  3. KEPPRA [Concomitant]
     Indication: EPILEPSY
  4. LAMICTAL [Concomitant]
     Indication: EPILEPSY
  5. RIVOTRIL [Concomitant]
     Indication: EPILEPSY

REACTIONS (2)
  - Streptococcal infection [Not Recovered/Not Resolved]
  - Cardiac disorder [Unknown]
